FAERS Safety Report 14339806 (Version 3)
Quarter: 2018Q2

REPORT INFORMATION
  Report Type: Spontaneous
  Country: DE (occurrence: DE)
  Receive Date: 20171230
  Receipt Date: 20180629
  Transmission Date: 20180711
  Serious: Yes (Other)
  Sender: FDA-Public Use
  Company Number: DE-MYLANLABS-2017M1082870

PATIENT
  Age: 54 Year
  Sex: Female

DRUGS (5)
  1. ESTRADIOL. [Suspect]
     Active Substance: ESTRADIOL
     Indication: HOT FLUSH
     Dosage: UNK
     Route: 062
     Dates: start: 2015
  2. ESTRADIOL. [Suspect]
     Active Substance: ESTRADIOL
     Indication: HORMONE REPLACEMENT THERAPY
  3. ESTRADIOL. [Suspect]
     Active Substance: ESTRADIOL
     Indication: SLEEP DISORDER
  4. ESTRADIOL. [Suspect]
     Active Substance: ESTRADIOL
     Indication: MENOPAUSAL SYMPTOMS
  5. ESTRADIOL. [Suspect]
     Active Substance: ESTRADIOL
     Indication: NIGHT SWEATS

REACTIONS (7)
  - Hepatic cirrhosis [Not Recovered/Not Resolved]
  - Somnolence [Not Recovered/Not Resolved]
  - Liver function test increased [Recovering/Resolving]
  - Blood bilirubin increased [Not Recovered/Not Resolved]
  - Contraindicated product administered [Unknown]
  - Abdominal distension [Not Recovered/Not Resolved]
  - Hepatic enzyme increased [Not Recovered/Not Resolved]

NARRATIVE: CASE EVENT DATE: 201611
